FAERS Safety Report 12658839 (Version 1)
Quarter: 2016Q3

REPORT INFORMATION
  Report Type: Spontaneous
  Country: US (occurrence: None)
  Receive Date: 20160816
  Receipt Date: 20160816
  Transmission Date: 20161109
  Serious: No
  Sender: FDA-Public Use
  Company Number: None

PATIENT
  Age: 41 Year
  Sex: Female
  Weight: 52.16 kg

DRUGS (4)
  1. XANAX [Concomitant]
     Active Substance: ALPRAZOLAM
  2. ZYRTEC [Concomitant]
     Active Substance: CETIRIZINE HYDROCHLORIDE
  3. FLONASE [Suspect]
     Active Substance: FLUTICASONE PROPIONATE
     Indication: RHINITIS ALLERGIC
     Dosage: 120 SPRAY(S) TWICE A DAY NASAL SPRAY
     Route: 045
     Dates: start: 20160810, end: 20160814
  4. ZADITOR [Concomitant]
     Active Substance: KETOTIFEN FUMARATE

REACTIONS (1)
  - Tremor [None]

NARRATIVE: CASE EVENT DATE: 20160813
